FAERS Safety Report 14246420 (Version 1)
Quarter: 2017Q4

REPORT INFORMATION
  Report Type: Report from Study
  Country: US (occurrence: US)
  Receive Date: 20171204
  Receipt Date: 20171204
  Transmission Date: 20180321
  Serious: Yes (Other)
  Sender: FDA-Public Use
  Company Number: US-TESARO, INC-US-2017TSO04154

PATIENT

DRUGS (1)
  1. ZEJULA [Suspect]
     Active Substance: NIRAPARIB
     Indication: FALLOPIAN TUBE CANCER
     Dosage: 100 MG, QD
     Route: 048

REACTIONS (3)
  - Incorrect dose administered [Unknown]
  - Aplasia pure red cell [Not Recovered/Not Resolved]
  - Adverse event [Not Recovered/Not Resolved]
